FAERS Safety Report 7685353-3 (Version None)
Quarter: 2011Q3

REPORT INFORMATION
  Report Type: 
  Country: None (occurrence: None)
  Receive Date: 20110812
  Receipt Date: 20110812
  Transmission Date: 20111222
  Serious: No
  Sender: FDA-Public Use
  Company Number: None

PATIENT
  Sex: Female
  Weight: 108.8633 kg

DRUGS (1)
  1. LANSOPRAZOLE [Suspect]
     Dosage: 30MG QD ORAL
     Route: 048

REACTIONS (2)
  - COUGH [None]
  - DRUG INEFFECTIVE [None]
